FAERS Safety Report 10314633 (Version 2)
Quarter: 2015Q1

REPORT INFORMATION
  Report Type: Spontaneous
  Country: US (occurrence: None)
  Receive Date: 20140717
  Receipt Date: 20150306
  Transmission Date: 20150720
  Serious: Yes (Hospitalization)
  Sender: FDA-Public Use
  Company Number: UNT-2014-003749

PATIENT
  Age: 29 Year
  Sex: Female
  Weight: 59 kg

DRUGS (4)
  1. REMODULIN [Suspect]
     Active Substance: TREPROSTINIL
     Indication: PULMONARY ARTERIAL HYPERTENSION
     Route: 058
     Dates: start: 20130117
  2. LETAIRIS [Concomitant]
     Active Substance: AMBRISENTAN
  3. REVATIO (SILDENAFIL CITRATE) [Concomitant]
  4. COUMADIN /00014802/ (WARFARIN SODIUM) [Concomitant]

REACTIONS (2)
  - Condition aggravated [None]
  - Pulmonary arterial hypertension [None]

NARRATIVE: CASE EVENT DATE: 20140705
